FAERS Safety Report 20610490 (Version 2)
Quarter: 2022Q2

REPORT INFORMATION
  Report Type: Spontaneous
  Country: IN (occurrence: IN)
  Receive Date: 20220318
  Receipt Date: 20220411
  Transmission Date: 20220721
  Serious: No
  Sender: FDA-Public Use
  Company Number: IN-LUPIN PHARMACEUTICALS INC.-2022-03585

PATIENT
  Age: 29 Year
  Sex: Female

DRUGS (13)
  1. CALCIUM [Suspect]
     Active Substance: CALCIUM
     Indication: Hungry bone syndrome
     Dosage: UNK
     Route: 065
  2. CALCIUM [Suspect]
     Active Substance: CALCIUM
     Dosage: UNK
     Route: 042
     Dates: start: 2019
  3. VITAMIN D [Suspect]
     Active Substance: VITAMIN D NOS
     Indication: Vitamin D decreased
     Dosage: UNK
     Route: 065
  4. VITAMIN D [Suspect]
     Active Substance: VITAMIN D NOS
     Indication: Constipation
     Dosage: UNK
     Route: 048
     Dates: start: 2019
  5. VITAMIN D [Suspect]
     Active Substance: VITAMIN D NOS
     Indication: Hungry bone syndrome
  6. SALINE [Suspect]
     Active Substance: SODIUM CHLORIDE
     Indication: Hyperparathyroidism primary
     Dosage: UNK
     Route: 042
     Dates: start: 2019
  7. SALINE [Suspect]
     Active Substance: SODIUM CHLORIDE
     Indication: Hypercalcaemia
  8. SALINE [Suspect]
     Active Substance: SODIUM CHLORIDE
     Indication: Pancreatitis acute
  9. SALINE [Suspect]
     Active Substance: SODIUM CHLORIDE
     Indication: Acute kidney injury
  10. CALCITONIN [Suspect]
     Active Substance: CALCITONIN
     Indication: Hyperparathyroidism primary
     Dosage: 4 INTERNATIONAL UNIT/KILOGRAM, BID
     Route: 065
     Dates: start: 2019
  11. CALCITONIN [Suspect]
     Active Substance: CALCITONIN
     Indication: Hypercalcaemia
  12. CALCITONIN [Suspect]
     Active Substance: CALCITONIN
     Indication: Pancreatitis acute
  13. CALCITONIN [Suspect]
     Active Substance: CALCITONIN
     Indication: Acute kidney injury

REACTIONS (2)
  - Exposure during pregnancy [Unknown]
  - Normal newborn [Unknown]

NARRATIVE: CASE EVENT DATE: 20190101
